FAERS Safety Report 8034359 (Version 2)
Quarter: 2012Q4

REPORT INFORMATION
  Report Type: 
  Country: US (occurrence: US)
  Receive Date: 20110714
  Receipt Date: 20121004
  Transmission Date: 20130627
  Serious: No
  Sender: FDA-Public Use
  Company Number: US-B.I. PHARMACEUTICALS,INC./RIDGEFIELD-2011-BP-13817BP

PATIENT
  Age: 70 Year
  Sex: Female

DRUGS (7)
  1. SPIRIVA HANDIHALER [Suspect]
     Indication: CHRONIC OBSTRUCTIVE PULMONARY DISEASE
     Dosage: 18 mcg
     Route: 055
     Dates: start: 20110519, end: 20110521
  2. SPIRIVA HANDIHALER [Suspect]
     Dosage: 18 mcg
     Route: 055
     Dates: start: 20120915, end: 20120926
  3. INSULIN [Concomitant]
  4. LASIX [Concomitant]
  5. DIOVAN [Concomitant]
  6. WARFARIN [Concomitant]
  7. HUMALOG 100 [Concomitant]
     Indication: DIABETES MELLITUS

REACTIONS (5)
  - Oedema peripheral [Not Recovered/Not Resolved]
  - Joint swelling [Not Recovered/Not Resolved]
  - Oropharyngeal pain [Unknown]
  - Blood glucose increased [Unknown]
  - Blood glucose decreased [Not Recovered/Not Resolved]
